FAERS Safety Report 23549189 (Version 2)
Quarter: 2024Q1

REPORT INFORMATION
  Report Type: Spontaneous
  Country: US (occurrence: US)
  Receive Date: 20240221
  Receipt Date: 20240226
  Transmission Date: 20240410
  Serious: No
  Sender: FDA-Public Use
  Company Number: US-PFIZER INC-202400004218

PATIENT
  Age: 65 Year
  Sex: Female
  Weight: 75.8 kg

DRUGS (1)
  1. IBRANCE [Suspect]
     Active Substance: PALBOCICLIB
     Indication: Breast cancer metastatic
     Dosage: 125MG TABLET; 1 TABLET ONCE A DAY FOR 21 DAYS AND OFF FOR 7 DAYS; 28 DAY CYCLE
     Dates: start: 20231030, end: 20240219

REACTIONS (2)
  - Neoplasm progression [Unknown]
  - Weight increased [Unknown]

NARRATIVE: CASE EVENT DATE: 20240117
